FAERS Safety Report 6435658-9 (Version None)
Quarter: 2009Q4

REPORT INFORMATION
  Report Type: 
  Country: None (occurrence: None)
  Receive Date: 20091111
  Receipt Date: 20091102
  Transmission Date: 20100525
  Serious: Yes (Other)
  Sender: FDA-Public Use
  Company Number: AU-NOVOPROD-300303

PATIENT
  Age: 65 Year
  Sex: Female

DRUGS (1)
  1. ACTRAPID HM PENFILL [Suspect]
     Indication: TYPE 2 DIABETES MELLITUS
     Dosage: TWICE DAILY
     Dates: start: 20010101

REACTIONS (1)
  - THROAT CANCER [None]
